FAERS Safety Report 11075648 (Version 3)
Quarter: 2015Q2

REPORT INFORMATION
  Report Type: Spontaneous
  Country: US (occurrence: US)
  Receive Date: 20150429
  Receipt Date: 20150506
  Transmission Date: 20150821
  Serious: No
  Sender: FDA-Public Use
  Company Number: US-PFIZER INC-2015144338

PATIENT
  Age: 89 Year
  Sex: Female
  Weight: 63 kg

DRUGS (3)
  1. EXFORGE [Concomitant]
     Active Substance: AMLODIPINE BESYLATE\VALSARTAN
     Dosage: 1X/DAY (5MG OF AMLODIPINE/250MG OF VALSARTAN TABLET ONCE A DAY WITH WATER)
  2. TOVIAZ [Suspect]
     Active Substance: FESOTERODINE FUMARATE
     Indication: INCONTINENCE
     Dosage: 8 MG, 1X/DAY (8MG TABLET ONE IN EVENING)
     Dates: start: 2015
  3. CRESTOR [Concomitant]
     Active Substance: ROSUVASTATIN CALCIUM
     Dosage: 20 MG, 1X/DAY (20MG TABLET ONCE A DAY WITH WATER TABLET)

REACTIONS (2)
  - Drug ineffective [Unknown]
  - Dysphonia [Not Recovered/Not Resolved]

NARRATIVE: CASE EVENT DATE: 201504
